FAERS Safety Report 5215718-0 (Version None)
Quarter: 2007Q1

REPORT INFORMATION
  Report Type: 
  Country: None (occurrence: None)
  Receive Date: 20070117
  Receipt Date: 20061227
  Transmission Date: 20070707
  Serious: No
  Sender: FDA-Public Use
  Company Number: 2007-152897-NL

PATIENT
  Age: 27 Year
  Sex: Female

DRUGS (2)
  1. DANAPAROID [Suspect]
     Indication: THROMBOSIS PROPHYLAXIS
     Dosage: 1500 ANTI_XA
  2. ASPIRIN [Concomitant]

REACTIONS (3)
  - ABORTION [None]
  - DRUG EXPOSURE DURING PREGNANCY [None]
  - PREGNANCY [None]
